FAERS Safety Report 6596832-4 (Version None)
Quarter: 2010Q1

REPORT INFORMATION
  Report Type: 
  Country: None (occurrence: None)
  Receive Date: 20100223
  Receipt Date: 20100215
  Transmission Date: 20100710
  Serious: Yes (Other)
  Sender: FDA-Public Use
  Company Number: GXKR2010GB01880

PATIENT
  Age: 69 Year
  Sex: Female

DRUGS (6)
  1. OMEPRAZOLE [Suspect]
     Dosage: 20 MG, QD
     Route: 048
     Dates: start: 20071128, end: 20080502
  2. ATORVASTATIN CALCIUM [Concomitant]
     Dosage: 100 MG, QD
  3. CANDESARTAN [Concomitant]
     Dosage: 16 MG, UNK
     Route: 048
  4. DICLOFENAC [Concomitant]
     Dosage: 100 MG, QD
  5. FELODIPINE [Concomitant]
     Route: 048
  6. BENDROFLUAZIDE [Concomitant]
     Dosage: 2.5 MG, QD
     Route: 048

REACTIONS (1)
  - HYPOMAGNESAEMIA [None]
